FAERS Safety Report 19141132 (Version 1)
Quarter: 2021Q2

REPORT INFORMATION
  Report Type: Spontaneous
  Country: CA (occurrence: CA)
  Receive Date: 20210415
  Receipt Date: 20210415
  Transmission Date: 20210717
  Serious: Yes (Other)
  Sender: FDA-Public Use
  Company Number: CA-009507513-2104CAN003194

PATIENT
  Age: 28 Year
  Sex: Female

DRUGS (2)
  1. PRINIVIL [Suspect]
     Active Substance: LISINOPRIL
     Indication: PRODUCT USED FOR UNKNOWN INDICATION
     Dosage: 10.0 MILLIGRAM, 1 EVERY 1 DAYS
     Route: 048
  2. PANTOPRAZOLE [Suspect]
     Active Substance: PANTOPRAZOLE
     Indication: PRODUCT USED FOR UNKNOWN INDICATION
     Dosage: 40.0 MILLIGRAM, 1 EVERY 1 DAYS; DOSAGE FORM: NOT SPECIFIED
     Route: 048

REACTIONS (11)
  - Hypoproteinaemia [Unknown]
  - High density lipoprotein decreased [Unknown]
  - Abdominal pain [Unknown]
  - Blood chloride increased [Unknown]
  - Blood cholesterol increased [Unknown]
  - Hypoalbuminaemia [Unknown]
  - Haemoglobin decreased [Unknown]
  - Blood creatine increased [Unknown]
  - Glomerulonephropathy [Unknown]
  - Proteinuria [Unknown]
  - Low density lipoprotein increased [Unknown]
